FAERS Safety Report 14698768 (Version 7)
Quarter: 2018Q3

REPORT INFORMATION
  Report Type: Spontaneous
  Country: US (occurrence: US)
  Receive Date: 20180330
  Receipt Date: 20180831
  Transmission Date: 20181010
  Serious: Yes (Other)
  Sender: FDA-Public Use
  Company Number: US-PFIZER INC-2018128737

PATIENT
  Age: 94 Year
  Sex: Female
  Weight: 70.3 kg

DRUGS (2)
  1. IBRANCE [Suspect]
     Active Substance: PALBOCICLIB
     Indication: BREAST CANCER METASTATIC
     Dosage: 75 MG, CYCLIC (DAYS 1?21 EVERY 28 DAYS)
     Route: 048
     Dates: start: 20180320
  2. IBRANCE [Suspect]
     Active Substance: PALBOCICLIB
     Dosage: 75 MG, CYCLIC (DAYS 1?21 EVERY 28 DAYS)
     Route: 048
     Dates: end: 201808

REACTIONS (8)
  - Renal impairment [Unknown]
  - Back pain [Unknown]
  - Platelet count decreased [Unknown]
  - Asthenia [Unknown]
  - Neoplasm progression [Unknown]
  - Fatigue [Unknown]
  - Balance disorder [Unknown]
  - White blood cell count decreased [Unknown]

NARRATIVE: CASE EVENT DATE: 201803
